FAERS Safety Report 15363194 (Version 1)
Quarter: 2018Q3

REPORT INFORMATION
  Report Type: Spontaneous
  Country: JP (occurrence: JP)
  Receive Date: 20180907
  Receipt Date: 20180907
  Transmission Date: 20181010
  Serious: Yes (Hospitalization)
  Sender: FDA-Public Use
  Company Number: PHJP2018JP015851

PATIENT
  Sex: Female

DRUGS (5)
  1. LAMISIL [Suspect]
     Active Substance: TERBINAFINE HYDROCHLORIDE
     Indication: TINEA PEDIS
  2. LAMISIL [Suspect]
     Active Substance: TERBINAFINE HYDROCHLORIDE
     Indication: TINEA MANUUM
     Dosage: 125 MG, UNK
     Route: 048
     Dates: start: 20180402, end: 20180426
  3. CELESTAMINE [Concomitant]
     Active Substance: BETAMETHASONE\DEXCHLORPHENIRAMINE MALEATE
     Indication: ECZEMA
     Dosage: 3 DF, UNK
     Route: 048
     Dates: start: 20180402, end: 20180426
  4. NIZORAL [Concomitant]
     Active Substance: KETOCONAZOLE
     Indication: TINEA PEDIS
     Dosage: 10 G, UNK
     Route: 061
     Dates: start: 20180402, end: 20180410
  5. ANTEBATE [Concomitant]
     Active Substance: BETAMETHASONE DIPROPIONATE
     Indication: ECZEMA
     Dosage: 20 G, UNK
     Route: 061
     Dates: start: 20180402, end: 20180410

REACTIONS (1)
  - Hepatic function abnormal [Recovered/Resolved]

NARRATIVE: CASE EVENT DATE: 20180426
